FAERS Safety Report 4950038-0 (Version None)
Quarter: 2006Q1

REPORT INFORMATION
  Report Type: 
  Country: None (occurrence: None)
  Receive Date: 20060315
  Receipt Date: 20060227
  Transmission Date: 20060701
  Serious: Yes (Hospitalization)
  Sender: FDA-Public Use
  Company Number: DK200601001668

PATIENT
  Age: 36 Year
  Sex: Male

DRUGS (2)
  1. ZYPREXA [Suspect]
     Dosage: 30 MG, DAILY (1/D), ORAL
     Route: 048
     Dates: start: 20041001
  2. LAMICTAL [Concomitant]

REACTIONS (8)
  - ABDOMINAL PAIN UPPER [None]
  - BRAIN OEDEMA [None]
  - C-REACTIVE PROTEIN INCREASED [None]
  - GRAND MAL CONVULSION [None]
  - HYPONATRAEMIA [None]
  - LABORATORY TEST ABNORMAL [None]
  - PRESCRIBED OVERDOSE [None]
  - VOMITING [None]
